FAERS Safety Report 6471946-8 (Version None)
Quarter: 2009Q4

REPORT INFORMATION
  Report Type: 
  Country: None (occurrence: None)
  Receive Date: 20091119
  Receipt Date: 20090720
  Transmission Date: 20100525
  Serious: No
  Sender: FDA-Public Use
  Company Number: WAES 0907USA03000

PATIENT
  Sex: Female

DRUGS (2)
  1. JANUVIA [Suspect]
     Indication: DIABETES MELLITUS
     Dosage: PO
     Route: 048
     Dates: start: 20090701
  2. CORTISONE [Concomitant]

REACTIONS (2)
  - BLOOD GLUCOSE INCREASED [None]
  - URINE OUTPUT INCREASED [None]
